FAERS Safety Report 4423401-4 (Version None)
Quarter: 2004Q3

REPORT INFORMATION
  Report Type: 
  Country: None (occurrence: None)
  Receive Date: 20040806
  Receipt Date: 20040722
  Transmission Date: 20050211
  Serious: Yes (Hospitalization)
  Sender: FDA-Public Use
  Company Number: 04P-056-0267919-00

PATIENT
  Age: 41 Year
  Sex: Male

DRUGS (4)
  1. NORVIR [Suspect]
     Dosage: PER ORAL
     Route: 048
     Dates: start: 20040401
  2. LAMIVUDINE [Suspect]
     Dosage: PER ORAL
     Route: 048
     Dates: start: 20040401
  3. VIREAD [Suspect]
     Dosage: PER ORAL
     Route: 048
     Dates: start: 20040401
  4. REYATAZ [Suspect]
     Dosage: PER ORAL
     Route: 048
     Dates: start: 20040401

REACTIONS (2)
  - DIABETES MELLITUS [None]
  - HYPERBILIRUBINAEMIA [None]
